FAERS Safety Report 10178521 (Version 2)
Quarter: 2014Q3

REPORT INFORMATION
  Report Type: Spontaneous
  Country: US (occurrence: None)
  Receive Date: 20140515
  Receipt Date: 20140818
  Transmission Date: 20150326
  Serious: Yes (Other)
  Sender: FDA-Public Use
  Company Number: ADR-2014-00815

PATIENT
  Sex: Female

DRUGS (6)
  1. FENTANYL. [Suspect]
     Active Substance: FENTANYL
  2. METFORMIN [Suspect]
     Active Substance: METFORMIN HYDROCHLORIDE
  3. MORPHINE INTRATHECAL (80MG/ML, 3.844 MG/DAY) [Suspect]
     Active Substance: MORPHINE
  4. CLONIDINE. [Suspect]
     Active Substance: CLONIDINE
  5. BACLOFEN. [Suspect]
     Active Substance: BACLOFEN
     Indication: PAIN
  6. LYSICS [Suspect]
     Active Substance: UNSPECIFIED INGREDIENT

REACTIONS (12)
  - Cognitive disorder [None]
  - Chronic obstructive pulmonary disease [None]
  - Hallucination [None]
  - Renal failure [None]
  - Cardiac failure congestive [None]
  - Device dislocation [None]
  - Device kink [None]
  - Aphasia [None]
  - Dehydration [None]
  - Aphagia [None]
  - Loss of consciousness [None]
  - Malnutrition [None]
